FAERS Safety Report 21847965 (Version 2)
Quarter: 2023Q1

REPORT INFORMATION
  Report Type: Spontaneous
  Country: US (occurrence: US)
  Receive Date: 20230111
  Receipt Date: 20230203
  Transmission Date: 20230418
  Serious: Yes (Hospitalization, Other)
  Sender: FDA-Public Use
  Company Number: US-drreddys-SPO/USA/23/0159448

PATIENT
  Age: 68 Year
  Sex: Female

DRUGS (2)
  1. DOXORUBICIN HYDROCHLORIDE [Suspect]
     Active Substance: DOXORUBICIN HYDROCHLORIDE
     Indication: Invasive ductal breast carcinoma
     Dosage: STARTED TREATMENT 6 WEEKS PRIOR TO PRESENTATION AND RECEIVED HER FOURTH CYCLE OF CHEMOTHERAPY (CUMUL
     Dates: start: 20211001, end: 2021
  2. CYCLOPHOSPHAMIDE [Suspect]
     Active Substance: CYCLOPHOSPHAMIDE
     Indication: Invasive ductal breast carcinoma
     Dosage: STARTED TREATMENT 6 WEEKS PRIOR TO PRESENTATION AND RECEIVED HER FOURTH CYCLE OF CHEMOTHERAPY (CUMUL

REACTIONS (4)
  - Left ventricular hypertrophy [Unknown]
  - Syncope [Recovered/Resolved]
  - Device malfunction [Recovered/Resolved]
  - Device pacing issue [Recovered/Resolved]
